FAERS Safety Report 4403900-1 (Version None)
Quarter: 2004Q3

REPORT INFORMATION
  Report Type: 
  Country: None (occurrence: None)
  Receive Date: 20040719
  Receipt Date: 20040708
  Transmission Date: 20050211
  Serious: Yes (Other)
  Sender: FDA-Public Use
  Company Number: DE-JNJFOC-20040701906

PATIENT
  Age: 50 Year
  Sex: Female
  Weight: 54 kg

DRUGS (2)
  1. CAELYX (DOXORUBICIN HYDROCHLORIDE) LIPOSOME INJECTION [Suspect]
     Indication: OVARIAN CANCER
     Dosage: 60 MG, INTRAVENOUS
     Route: 042
     Dates: start: 20030101, end: 20030801
  2. CARBAMAZEPINE (TABLETS) CARBAMAZEPINE [Concomitant]

REACTIONS (1)
  - ACUTE MYELOID LEUKAEMIA [None]
